FAERS Safety Report 24687000 (Version 1)
Quarter: 2024Q4

REPORT INFORMATION
  Report Type: Spontaneous
  Country: FR (occurrence: FR)
  Receive Date: 20241202
  Receipt Date: 20241202
  Transmission Date: 20250115
  Serious: Yes (Hospitalization)
  Sender: FRESENIUS KABI
  Company Number: None

PATIENT
  Age: 72 Year
  Sex: Female
  Weight: 92 kg

DRUGS (11)
  1. PACLITAXEL [Suspect]
     Active Substance: PACLITAXEL
     Indication: Breast cancer recurrent
     Dosage: ROUTE: INTRAVENOUS USE
     Dates: start: 20240429
  2. PREGABALIN [Suspect]
     Active Substance: PREGABALIN
     Indication: Peripheral sensory neuropathy
     Route: 048
     Dates: start: 20241007, end: 20241022
  3. AVASTIN [Suspect]
     Active Substance: BEVACIZUMAB
     Indication: Breast cancer recurrent
     Route: 042
     Dates: start: 20240429
  4. CANDESARTAN CILEXETIL [Concomitant]
     Active Substance: CANDESARTAN CILEXETIL
     Indication: Product used for unknown indication
  5. PRAZEPAM [PRAZEPAM] [Concomitant]
     Indication: Product used for unknown indication
  6. ZOPICLONE [Concomitant]
     Active Substance: ZOPICLONE
     Indication: Product used for unknown indication
  7. CLOMIPRAMINE [Concomitant]
     Active Substance: CLOMIPRAMINE
     Indication: Product used for unknown indication
     Dosage: 25 MG
  8. CLOMIPRAMINE [Concomitant]
     Active Substance: CLOMIPRAMINE
     Dosage: 75 MG
  9. PRAVASTATIN SODIUM [Concomitant]
     Active Substance: PRAVASTATIN SODIUM
     Indication: Product used for unknown indication
  10. TERCIAN [CYAMEMAZINE, CYAMEMAZINE (ACID TARTRATE), CYAMEMAZINE (TARTRA [Concomitant]
     Indication: Product used for unknown indication
  11. VOGALENE [METOPIMAZINE] [Concomitant]
     Indication: Product used for unknown indication

REACTIONS (1)
  - Hypertensive crisis [Recovered/Resolved]

NARRATIVE: CASE EVENT DATE: 20241019
